FAERS Safety Report 10996262 (Version 3)
Quarter: 2015Q3

REPORT INFORMATION
  Report Type: Spontaneous
  Country: US (occurrence: US)
  Receive Date: 20150408
  Receipt Date: 20150804
  Transmission Date: 20151125
  Serious: Yes (Disabling, Other)
  Sender: FDA-Public Use
  Company Number: US-AMGEN-USASP2015032977

PATIENT
  Age: 64 Year
  Sex: Female

DRUGS (2)
  1. ENBREL [Suspect]
     Active Substance: ETANERCEPT
     Indication: RHEUMATOID ARTHRITIS
     Dosage: 50 MG, QWK
     Route: 065
     Dates: start: 20141114
  2. ENBREL [Suspect]
     Active Substance: ETANERCEPT
     Indication: POLYARTHRITIS

REACTIONS (13)
  - Joint stiffness [Unknown]
  - Viral infection [Not Recovered/Not Resolved]
  - Discomfort [Unknown]
  - Arthritis [Unknown]
  - Diarrhoea [Not Recovered/Not Resolved]
  - Fatigue [Not Recovered/Not Resolved]
  - Drug effect decreased [Unknown]
  - Nausea [Unknown]
  - Nasopharyngitis [Not Recovered/Not Resolved]
  - Carpal tunnel decompression [Unknown]
  - Muscle spasms [Unknown]
  - Oral herpes [Not Recovered/Not Resolved]
  - Dupuytren^s contracture [Unknown]

NARRATIVE: CASE EVENT DATE: 20150203
